FAERS Safety Report 8460763-5 (Version None)
Quarter: 2012Q2

REPORT INFORMATION
  Report Type: 
  Country: None (occurrence: None)
  Receive Date: 20120622
  Receipt Date: 20120614
  Transmission Date: 20120825
  Serious: Yes (Other)
  Sender: FDA-Public Use
  Company Number: US-RB-040157-12

PATIENT
  Age: 48 Year
  Sex: Male

DRUGS (1)
  1. SUBOXONE [Suspect]
     Indication: PAIN
     Dosage: DOSING DETAILS UNKNOWN
     Route: 065

REACTIONS (5)
  - OFF LABEL USE [None]
  - OCULAR NEOPLASM [None]
  - CHEST PAIN [None]
  - CONDITION AGGRAVATED [None]
  - INTENTIONAL DRUG MISUSE [None]
